FAERS Safety Report 6316005-X (Version None)
Quarter: 2009Q3

REPORT INFORMATION
  Report Type: 
  Country: None (occurrence: None)
  Receive Date: 20090820
  Receipt Date: 20090817
  Transmission Date: 20100115
  Serious: Yes (Other)
  Sender: FDA-Public Use
  Company Number: US-BRISTOL-MYERS SQUIBB COMPANY-14744031

PATIENT
  Age: 61 Year
  Sex: Male

DRUGS (2)
  1. PACLITAXEL [Suspect]
     Indication: METASTATIC MALIGNANT MELANOMA
     Dosage: CONTINUED FOR 5 MONTHLY CYCLES
  2. ALLOPURINOL [Interacting]
     Indication: GOUT

REACTIONS (2)
  - DRUG INTERACTION [None]
  - GOUT [None]
